FAERS Safety Report 19952629 (Version 2)
Quarter: 2021Q4

REPORT INFORMATION
  Report Type: Spontaneous
  Country: JP (occurrence: JP)
  Receive Date: 20211014
  Receipt Date: 20211026
  Transmission Date: 20220303
  Serious: Yes (Other)
  Sender: FDA-Public Use
  Company Number: JP-JNJFOC-20211018392

PATIENT
  Sex: Male

DRUGS (1)
  1. SIMPONI [Suspect]
     Active Substance: GOLIMUMAB
     Indication: Rheumatoid arthritis
     Dosage: GOLIMUMAB (GENETICAL RECOMBINATION): 50 MG
     Route: 058
     Dates: start: 20210626, end: 2021

REACTIONS (1)
  - Gas gangrene [Recovered/Resolved]

NARRATIVE: CASE EVENT DATE: 20210902
